FAERS Safety Report 6782082-5 (Version None)
Quarter: 2010Q2

REPORT INFORMATION
  Report Type: 
  Country: None (occurrence: None)
  Receive Date: 20100621
  Receipt Date: 20100614
  Transmission Date: 20101027
  Serious: Yes (Life-Threatening, Hospitalization)
  Sender: FDA-Public Use
  Company Number: B0661375A

PATIENT
  Age: 74 Year
  Sex: Male

DRUGS (1)
  1. AMOXICILLIN [Suspect]
     Indication: PNEUMONIA

REACTIONS (7)
  - DRUG ERUPTION [None]
  - DYSPNOEA [None]
  - ERYTHEMA OF EYELID [None]
  - EYELID OEDEMA [None]
  - RENAL FAILURE ACUTE [None]
  - SKIN LESION [None]
  - STEVENS-JOHNSON SYNDROME [None]
